FAERS Safety Report 14324775 (Version 1)
Quarter: 2017Q4

REPORT INFORMATION
  Report Type: Spontaneous
  Country: US (occurrence: US)
  Receive Date: 20171222
  Receipt Date: 20171222
  Transmission Date: 20180321
  Serious: Yes (Life-Threatening)
  Sender: FDA-Public Use
  Company Number: None

PATIENT
  Age: 58 Year
  Sex: Male

DRUGS (2)
  1. INSULIN [Suspect]
     Active Substance: INSULIN NOS
     Indication: DIABETES MELLITUS
     Dosage: DOSE - 10 UNITS
     Route: 058
     Dates: start: 20161129
  2. INSULIN [Suspect]
     Active Substance: INSULIN NOS
     Indication: DIABETES MELLITUS
     Dosage: DOSE - 15 UNITS
     Route: 058
     Dates: start: 20110419, end: 20170926

REACTIONS (4)
  - Unresponsive to stimuli [None]
  - Somnolence [None]
  - Foaming at mouth [None]
  - Hypoglycaemia [None]

NARRATIVE: CASE EVENT DATE: 20170925
